FAERS Safety Report 10635683 (Version 1)
Quarter: 2014Q4

REPORT INFORMATION
  Report Type: Spontaneous
  Country: DE (occurrence: DE)
  Receive Date: 20141205
  Receipt Date: 20141205
  Transmission Date: 20150529
  Serious: Yes (Life-Threatening, Hospitalization)
  Sender: FDA-Public Use
  Company Number: DE-TEVA-526284GER

PATIENT
  Age: 21 Year
  Sex: Female

DRUGS (7)
  1. NIACIN. [Suspect]
     Active Substance: NIACIN
     Indication: SUICIDE ATTEMPT
     Dosage: 56 TABLETS OF 500MG (28000MG)
     Route: 048
  2. GABAPENTIN. [Suspect]
     Active Substance: GABAPENTIN
     Indication: SUICIDE ATTEMPT
     Dosage: 40 TABLETS OF 400MG (16000MG)
     Route: 048
  3. KETOPROFEN. [Suspect]
     Active Substance: KETOPROFEN
     Indication: SUICIDE ATTEMPT
     Dosage: 30 TABLETS OF 50MG (1500MG)
     Route: 048
  4. AMITRIPTYLINE [Suspect]
     Active Substance: AMITRIPTYLINE
     Indication: SUICIDE ATTEMPT
     Dosage: 60 TABLETS OF 100MG (6000MG)
     Route: 048
  5. CARVEDILOL. [Suspect]
     Active Substance: CARVEDILOL
     Indication: SUICIDE ATTEMPT
     Dosage: 70 TABLETS OF 25MG (1750MG)
     Route: 048
  6. TORASEMIDE [Suspect]
     Active Substance: TORSEMIDE
     Indication: SUICIDE ATTEMPT
     Dosage: 50 TABLETS OF 10MG (500MG)
     Route: 048
  7. AMLODIPINE [Suspect]
     Active Substance: AMLODIPINE BESYLATE
     Indication: SUICIDE ATTEMPT
     Dosage: 60 TABLETS OF 5MG (300MG)
     Route: 048

REACTIONS (6)
  - Loss of consciousness [Recovering/Resolving]
  - Cardiac failure [Recovering/Resolving]
  - Toxicity to various agents [Recovering/Resolving]
  - Overdose [Recovering/Resolving]
  - Suicide attempt [Unknown]
  - Bradycardia [Recovering/Resolving]
